FAERS Safety Report 7715390-1 (Version None)
Quarter: 2011Q3

REPORT INFORMATION
  Report Type: 
  Country: None (occurrence: None)
  Receive Date: 20110829
  Receipt Date: 20110815
  Transmission Date: 20111222
  Serious: Yes (Other)
  Sender: FDA-Public Use
  Company Number: US-ELI_LILLY_AND_COMPANY-US201009000742

PATIENT
  Sex: Female

DRUGS (12)
  1. FORTEO [Suspect]
     Indication: OSTEOPOROSIS
     Dosage: 20 UG, DAILY (1/D)
     Route: 065
     Dates: start: 20100701
  2. FORTEO [Suspect]
     Dosage: 20 UG, DAILY (1/D)
  3. FORTEO [Suspect]
     Dosage: 20 UG, QD
  4. ASPIRIN [Concomitant]
  5. CALCIUM CARBONATE [Concomitant]
  6. FISH OIL [Concomitant]
  7. VITAMIN TAB [Concomitant]
     Dosage: UNK, OTHER
  8. PREMARIN [Concomitant]
  9. OMNARIS [Concomitant]
  10. FORTEO [Suspect]
     Dosage: 20 UG, DAILY (1/D)
  11. OSTEO BI-FLEX [Concomitant]
  12. AMBIEN CR [Concomitant]

REACTIONS (13)
  - BLOOD CALCIUM INCREASED [None]
  - VOMITING [None]
  - INJECTION SITE HAEMATOMA [None]
  - WRIST FRACTURE [None]
  - ARTHRITIS [None]
  - CONSTIPATION [None]
  - ARTHRALGIA [None]
  - FALL [None]
  - HYPERSENSITIVITY [None]
  - COCCYDYNIA [None]
  - GASTROOESOPHAGEAL REFLUX DISEASE [None]
  - INSOMNIA [None]
  - BONE DISORDER [None]
